FAERS Safety Report 24401960 (Version 2)
Quarter: 2025Q1

REPORT INFORMATION
  Report Type: Report from Study
  Country: CA (occurrence: CA)
  Receive Date: 20241007
  Receipt Date: 20250327
  Transmission Date: 20250409
  Serious: Yes (Other)
  Sender: TAKEDA
  Company Number: CA-TAKEDA-2023TUS046530

PATIENT
  Sex: Male

DRUGS (4)
  1. VEDOLIZUMAB [Suspect]
     Active Substance: VEDOLIZUMAB
     Indication: Crohn^s disease
  2. VEDOLIZUMAB [Suspect]
     Active Substance: VEDOLIZUMAB
     Indication: Crohn^s disease
     Dosage: 108 MILLIGRAM, Q2WEEKS
     Dates: start: 20230327
  3. STELARA [Concomitant]
     Active Substance: USTEKINUMAB
     Dosage: UNK, Q8WEEKS
     Dates: start: 202103
  4. STELARA [Concomitant]
     Active Substance: USTEKINUMAB
     Dosage: UNK, Q4WEEKS

REACTIONS (1)
  - Crohn^s disease [Unknown]
